FAERS Safety Report 11379446 (Version 1)
Quarter: 2015Q3

REPORT INFORMATION
  Report Type: Spontaneous
  Country: US (occurrence: US)
  Receive Date: 20150814
  Receipt Date: 20150814
  Transmission Date: 20151125
  Serious: No
  Sender: FDA-Public Use
  Company Number: US-AMGEN-USASP2015082148

PATIENT
  Age: 74 Year
  Sex: Female

DRUGS (2)
  1. ENBREL [Suspect]
     Active Substance: ETANERCEPT
     Indication: PSORIASIS
     Dosage: 50 MG, QWK
     Route: 065
     Dates: start: 20150216, end: 20150608
  2. ENBREL [Suspect]
     Active Substance: ETANERCEPT
     Indication: PSORIATIC ARTHROPATHY

REACTIONS (11)
  - Arthralgia [Unknown]
  - Drug hypersensitivity [Unknown]
  - Pain [Recovering/Resolving]
  - Weight increased [Recovering/Resolving]
  - Lymphocyte count abnormal [Unknown]
  - Memory impairment [Unknown]
  - Bone pain [Unknown]
  - Eosinophil count abnormal [Unknown]
  - Disturbance in attention [Unknown]
  - Alopecia [Unknown]
  - Musculoskeletal stiffness [Unknown]

NARRATIVE: CASE EVENT DATE: 2015
